FAERS Safety Report 6815779-9 (Version None)
Quarter: 2010Q3

REPORT INFORMATION
  Report Type: 
  Country: None (occurrence: None)
  Receive Date: 20100705
  Receipt Date: 20100628
  Transmission Date: 20110219
  Serious: Yes (Other)
  Sender: FDA-Public Use
  Company Number: IE-MERCK-1005GBR00047

PATIENT
  Age: 7 Year
  Sex: Male

DRUGS (5)
  1. SINGULAIR [Suspect]
     Route: 048
     Dates: start: 20100118, end: 20100201
  2. ALBUTEROL [Concomitant]
     Indication: ASTHMA
     Route: 055
     Dates: end: 20100201
  3. ALBUTEROL [Concomitant]
     Indication: RHINITIS ALLERGIC
     Route: 055
     Dates: end: 20100201
  4. FLUOXETINE [Concomitant]
     Route: 055
     Dates: end: 20100201
  5. FLUTICASONE FUROATE [Concomitant]
     Route: 065
     Dates: end: 20100201

REACTIONS (3)
  - PARAESTHESIA [None]
  - SOCIAL AVOIDANT BEHAVIOUR [None]
  - SUICIDAL IDEATION [None]
